FAERS Safety Report 13485150 (Version 4)
Quarter: 2017Q2

REPORT INFORMATION
  Report Type: Report from Study
  Country: US (occurrence: US)
  Receive Date: 20170425
  Receipt Date: 20170613
  Transmission Date: 20170830
  Serious: Yes (Hospitalization, Other)
  Sender: FDA-Public Use
  Company Number: PHHO2017US006431

PATIENT
  Age: 16 Year
  Sex: Male
  Weight: 116.9 kg

DRUGS (10)
  1. METHOTREXATE. [Suspect]
     Active Substance: METHOTREXATE
     Indication: B-CELL TYPE ACUTE LEUKAEMIA
     Dosage: UNK
     Route: 037
     Dates: start: 20170402
  2. PEGASPARGASE [Suspect]
     Active Substance: PEGASPARGASE
     Indication: B-CELL TYPE ACUTE LEUKAEMIA
     Dosage: 5900 U, (Q 15 DAYS)
     Route: 042
     Dates: start: 20170213, end: 20170329
  3. INC424 [Suspect]
     Active Substance: RUXOLITINIB
     Indication: B-CELL TYPE ACUTE LEUKAEMIA
     Dosage: 60 MG, BID (14 DAYS ON, 14 DAYS OFF)
     Route: 048
     Dates: start: 20170130, end: 20170329
  4. KYTRIL [Concomitant]
     Active Substance: GRANISETRON HYDROCHLORIDE
     Indication: NAUSEA
     Dosage: 1 MG, Q12H, PRN
     Route: 048
     Dates: start: 20170310
  5. SCOPOLAMINE [Concomitant]
     Active Substance: SCOPOLAMINE
     Indication: NAUSEA
     Dosage: 1 DF, 1 PATCH EVERY 3 DAYS PRN
     Route: 061
     Dates: start: 20170130
  6. MERCAPTOPURINE. [Suspect]
     Active Substance: MERCAPTOPURINE
     Indication: B-CELL TYPE ACUTE LEUKAEMIA
     Dosage: 150 MG, QD 14 DAYS ON , 14 DAYS OFF
     Route: 048
     Dates: start: 20170130, end: 20170329
  7. VINCRISTINE [Suspect]
     Active Substance: VINCRISTINE
     Indication: B-CELL TYPE ACUTE LEUKAEMIA
     Dosage: 2 MG, UNK (Q 15 DAYS)
     Route: 042
     Dates: start: 20170213, end: 20170329
  8. CYTARABINE. [Suspect]
     Active Substance: CYTARABINE
     Indication: B-CELL TYPE ACUTE LEUKAEMIA
     Dosage: 177 MG, UNK (177 MG X4, DAYS 1-4, 8-11, 29-32, 36-39)
     Route: 042
     Dates: start: 20170130, end: 20170329
  9. PHENERGAN [Concomitant]
     Active Substance: PROMETHAZINE HYDROCHLORIDE
     Indication: NAUSEA
     Dosage: 25 MG, Q6H
     Route: 048
     Dates: start: 20170227
  10. TRAMADOL. [Concomitant]
     Active Substance: TRAMADOL
     Indication: HEADACHE
     Dosage: 100 MG, Q6H (PRN)
     Route: 065
     Dates: start: 20170130

REACTIONS (5)
  - Dehydration [Recovered/Resolved]
  - Headache [Recovered/Resolved]
  - Central nervous system neoplasm [Recovered/Resolved]
  - Nausea [Recovered/Resolved]
  - Encephalopathy [Recovered/Resolved]

NARRATIVE: CASE EVENT DATE: 20170325
